FAERS Safety Report 9363767 (Version 1)
Quarter: 2013Q2

REPORT INFORMATION
  Report Type: Spontaneous
  Country: US (occurrence: US)
  Receive Date: 20130624
  Receipt Date: 20130624
  Transmission Date: 20140414
  Serious: Yes (Death)
  Sender: FDA-Public Use
  Company Number: 2013SP001784

PATIENT
  Age: 43 Year
  Sex: Male

DRUGS (12)
  1. LATUDA [Suspect]
     Indication: SCHIZOAFFECTIVE DISORDER
     Route: 048
     Dates: start: 20130516, end: 20130616
  2. LATUDA [Suspect]
     Indication: DEPRESSION
     Route: 048
     Dates: start: 20130516, end: 20130616
  3. LATUDA [Suspect]
     Indication: PANIC DISORDER
     Route: 048
     Dates: start: 20130516, end: 20130616
  4. LATUDA [Suspect]
     Indication: FEAR
     Route: 048
     Dates: start: 20130516, end: 20130616
  5. FLUOXETINE [Concomitant]
     Indication: PRODUCT USED FOR UNKNOWN INDICATION
     Route: 048
     Dates: end: 20130616
  6. AMITRIPTYLINE [Concomitant]
     Indication: PRODUCT USED FOR UNKNOWN INDICATION
     Route: 048
     Dates: end: 20130616
  7. PRAZOSIN [Concomitant]
     Indication: PRODUCT USED FOR UNKNOWN INDICATION
     Route: 048
     Dates: end: 20130616
  8. PROPRANOLOL [Concomitant]
     Indication: PRODUCT USED FOR UNKNOWN INDICATION
     Route: 048
     Dates: end: 20130616
  9. VALIUM                             /00017001/ [Concomitant]
     Indication: PRODUCT USED FOR UNKNOWN INDICATION
     Dates: end: 20130616
  10. METFORMIN [Concomitant]
     Indication: PRODUCT USED FOR UNKNOWN INDICATION
     Dates: end: 20130616
  11. LESCOL [Concomitant]
     Indication: PRODUCT USED FOR UNKNOWN INDICATION
     Dates: end: 20130616
  12. OXYCODONE [Concomitant]
     Indication: PAIN
     Dates: end: 20130616

REACTIONS (1)
  - Death [Fatal]
